FAERS Safety Report 5176663-2 (Version None)
Quarter: 2006Q4

REPORT INFORMATION
  Report Type: 
  Country: None (occurrence: None)
  Receive Date: 20061215
  Receipt Date: 20061206
  Transmission Date: 20070319
  Serious: Yes (Other)
  Sender: FDA-Public Use
  Company Number: ES-MERCK-0612ESP00018

PATIENT
  Age: 63 Year
  Sex: Female

DRUGS (2)
  1. MEVACOR [Suspect]
     Route: 048
  2. GEMFIBROZIL [Suspect]
     Route: 048

REACTIONS (1)
  - HEPATITIS TOXIC [None]
